FAERS Safety Report 8847006 (Version 1)
Quarter: 2012Q4

REPORT INFORMATION
  Report Type: 
  Country: GB (occurrence: GB)
  Receive Date: 20121018
  Receipt Date: 20121018
  Transmission Date: 20130627
  Serious: Yes (Other)
  Sender: FDA-Public Use
  Company Number: GB-PFIZER INC-2012252962

PATIENT
  Age: 57 Year
  Sex: Female
  Weight: 73 kg

DRUGS (5)
  1. ESTRADIOL [Suspect]
     Dosage: UNK
     Dates: start: 20120924
  2. BUDESONIDE [Concomitant]
     Dosage: UNK
     Dates: start: 20120522, end: 20120721
  3. DOXYCYCLINE [Concomitant]
     Dosage: UNK
     Dates: start: 20120522, end: 20120814
  4. KLIOVANCE [Concomitant]
     Dosage: UNK
     Dates: start: 20120522
  5. AMITRIPTYLINE HYDROCHLORIDE [Concomitant]
     Dosage: UNK
     Dates: start: 20120924

REACTIONS (1)
  - Rash generalised [Recovering/Resolving]
